FAERS Safety Report 7417628-7 (Version None)
Quarter: 2011Q2

REPORT INFORMATION
  Report Type: 
  Country: None (occurrence: None)
  Receive Date: 20110408
  Receipt Date: 20110324
  Transmission Date: 20111010
  Serious: Yes (Other)
  Sender: FDA-Public Use
  Company Number: AUR-APL-2010-02144

PATIENT
  Age: 87 Year
  Sex: Female
  Weight: 53.06 kg

DRUGS (8)
  1. AZITHROMYCIN [Suspect]
     Dates: start: 20090401
  2. IRON [Concomitant]
  3. GLYBURIDE [Suspect]
  4. BENICAR [Concomitant]
  5. PROTONIX [Suspect]
     Indication: OESOPHAGEAL DISORDER
     Dosage: 40G DAILY, ORAL, 0.5 TABLET, DAILY ORAL
     Route: 048
     Dates: start: 20070101, end: 20091101
  6. PROTONIX [Suspect]
     Indication: OESOPHAGEAL DISORDER
     Dosage: 40G DAILY, ORAL, 0.5 TABLET, DAILY ORAL
     Route: 048
     Dates: start: 20091101
  7. NORVASC [Concomitant]
  8. METFORMIN HYDROCHLORIDE [Suspect]

REACTIONS (13)
  - GENERAL PHYSICAL HEALTH DETERIORATION [None]
  - WRONG TECHNIQUE IN DRUG USAGE PROCESS [None]
  - DRUG ADMINISTRATION ERROR [None]
  - BODY TEMPERATURE INCREASED [None]
  - EPISTAXIS [None]
  - WEIGHT DECREASED [None]
  - CONDITION AGGRAVATED [None]
  - CHRONIC MYELOID LEUKAEMIA [None]
  - DRUG INTERACTION [None]
  - DISCOMFORT [None]
  - BLOOD IRON DECREASED [None]
  - DIABETES MELLITUS INADEQUATE CONTROL [None]
  - ANAEMIA [None]
